FAERS Safety Report 9602004 (Version 1)
Quarter: 2013Q4

REPORT INFORMATION
  Report Type: Report from Study
  Country: BR (occurrence: BR)
  Receive Date: 20131007
  Receipt Date: 20131007
  Transmission Date: 20140711
  Serious: Yes (Other)
  Sender: FDA-Public Use
  Company Number: PHHY2013BR110930

PATIENT
  Age: 55 Year
  Sex: Female

DRUGS (6)
  1. ONBREZ [Suspect]
     Indication: CHRONIC OBSTRUCTIVE PULMONARY DISEASE
     Dosage: 300 MG, QD
  2. ONBREZ [Suspect]
     Dosage: 150 UG, UNK
  3. AZITHROMYCIN [Suspect]
  4. PREDNISONE [Concomitant]
     Dosage: 40 MG, QD
  5. ROFLUMILAST [Concomitant]
     Dosage: 250 MG, QOD
  6. ROFLUMILAST [Concomitant]
     Dosage: 500 MG, QD

REACTIONS (7)
  - Lung hyperinflation [Recovering/Resolving]
  - Pulmonary fibrosis [Recovering/Resolving]
  - Pulmonary mass [Recovering/Resolving]
  - Obstructive airways disorder [Recovering/Resolving]
  - Emphysema [Unknown]
  - Cough [Unknown]
  - Chronic obstructive pulmonary disease [Unknown]
